FAERS Safety Report 8348826-6 (Version None)
Quarter: 2012Q2

REPORT INFORMATION
  Report Type: 
  Country: None (occurrence: None)
  Receive Date: 20120508
  Receipt Date: 20120423
  Transmission Date: 20120825
  Serious: Yes (Other)
  Sender: FDA-Public Use
  Company Number: JPI-P-019947

PATIENT
  Age: 58 Year
  Sex: Female

DRUGS (29)
  1. CEVIMELINE HYDROCHLORIDE [Concomitant]
  2. CYANOCOBALAMIN [Concomitant]
  3. POTASSIUM CHLORIDE [Concomitant]
  4. EXENATIDE [Concomitant]
  5. M.V.I. [Concomitant]
  6. DICLOFENAC SODIUM [Concomitant]
  7. NABILONE [Concomitant]
  8. HYROCODONE/APAP [Concomitant]
  9. XYREM [Suspect]
     Indication: NARCOLEPSY
     Dosage: ORAL ; 9 GM (4.5 GM,2 IN 1 D),ORAL
     Route: 048
     Dates: start: 20071113
  10. LEVOTHYROXINE SODIUM [Concomitant]
  11. GLIPIZIDE [Concomitant]
  12. FLUCONAZOLE [Concomitant]
  13. VERAPAMIL [Concomitant]
  14. ESCITALOPRAM OXALATE [Concomitant]
  15. CYCLOBENZAPRINE [Concomitant]
  16. PRAVASTATIN [Concomitant]
  17. ALPRAZOLAM [Concomitant]
  18. OMEPRAZOLE [Concomitant]
  19. AMITRIPTYLINE HCL [Concomitant]
  20. FLAVOCOXID [Concomitant]
  21. LUBIPROSTONE [Concomitant]
  22. MUPIROCIN [Concomitant]
  23. CENTRUM SILVER VITAMIN [Concomitant]
  24. HYDROXYCHLOROQUINE SULFATE [Concomitant]
  25. ASPIRIN [Concomitant]
  26. PROMETHAZINE [Concomitant]
  27. QUINAPRIL [Concomitant]
  28. TOPIRAMATE [Concomitant]
  29. RISEDRONATE SODIUM [Concomitant]

REACTIONS (2)
  - CORONARY ARTERY DISEASE [None]
  - SINUSITIS [None]
